FAERS Safety Report 10690323 (Version 5)
Quarter: 2015Q3

REPORT INFORMATION
  Report Type: Spontaneous
  Country: US (occurrence: US)
  Receive Date: 20150105
  Receipt Date: 20150708
  Transmission Date: 20151125
  Serious: Yes (Other)
  Sender: FDA-Public Use
  Company Number: US-GLAXOSMITHKLINE-US2014GSK044966

PATIENT
  Age: 64 Year
  Sex: Female

DRUGS (2)
  1. MEKINIST [Suspect]
     Active Substance: TRAMETINIB DIMETHYL SULFOXIDE
     Indication: NEOPLASM MALIGNANT
     Dosage: 2MG TABS, 4 MG, CYC
     Route: 048
  2. MEKINIST [Suspect]
     Active Substance: TRAMETINIB DIMETHYL SULFOXIDE
     Indication: URACHAL ABNORMALITY
     Dosage: 0.5 MG TABS, 1 MG, QD
     Route: 048
     Dates: start: 20130719

REACTIONS (16)
  - Pain [Recovered/Resolved]
  - Scar [Unknown]
  - Dry skin [Not Recovered/Not Resolved]
  - Dry throat [Not Recovered/Not Resolved]
  - Oropharyngeal pain [Not Recovered/Not Resolved]
  - Myalgia [Not Recovered/Not Resolved]
  - Dysphonia [Not Recovered/Not Resolved]
  - Blood creatine phosphokinase abnormal [Not Recovered/Not Resolved]
  - Dry mouth [Not Recovered/Not Resolved]
  - Skin lesion [Unknown]
  - Dry eye [Not Recovered/Not Resolved]
  - Muscular weakness [Not Recovered/Not Resolved]
  - Memory impairment [Not Recovered/Not Resolved]
  - Rhabdomyolysis [Recovered/Resolved]
  - Rash erythematous [Recovered/Resolved]
  - Muscle spasms [Not Recovered/Not Resolved]

NARRATIVE: CASE EVENT DATE: 201404
